FAERS Safety Report 23796737 (Version 1)
Quarter: 2024Q2

REPORT INFORMATION
  Report Type: Report from Study
  Country: CA (occurrence: CA)
  Receive Date: 20240430
  Receipt Date: 20240430
  Transmission Date: 20240715
  Serious: Yes (Hospitalization, Other)
  Sender: FDA-Public Use
  Company Number: CA-JNJFOC-20240112548

PATIENT
  Sex: Male
  Weight: 50 kg

DRUGS (4)
  1. STELARA [Suspect]
     Active Substance: USTEKINUMAB
     Indication: Crohn^s disease
     Route: 040
     Dates: start: 20200918
  2. STELARA [Suspect]
     Active Substance: USTEKINUMAB
     Route: 058
     Dates: end: 20230104
  3. STELARA [Suspect]
     Active Substance: USTEKINUMAB
     Dosage: IV RE-INDUCTION DOSE
     Route: 040
  4. STELARA [Suspect]
     Active Substance: USTEKINUMAB
     Route: 058

REACTIONS (5)
  - Crohn^s disease [Unknown]
  - Abscess intestinal [Not Recovered/Not Resolved]
  - Gastrointestinal infection [Recovered/Resolved]
  - Mental disorder [Not Recovered/Not Resolved]
  - Product dose omission issue [Unknown]
